FAERS Safety Report 24580801 (Version 1)
Quarter: 2024Q4

REPORT INFORMATION
  Report Type: Spontaneous
  Country: US (occurrence: None)
  Receive Date: 20241105
  Receipt Date: 20241105
  Transmission Date: 20250114
  Serious: Yes (Hospitalization)
  Sender: Public
  Company Number: None

PATIENT
  Sex: Female

DRUGS (3)
  1. RETEVMO [Suspect]
     Active Substance: SELPERCATINIB
     Indication: Lung neoplasm malignant
     Dosage: OTHER QUANTITY : TAKE 2 CAPSULES;?FREQUENCY : TWICE A DAY;?
     Route: 048
     Dates: start: 20240911
  2. RETEVMO [Suspect]
     Active Substance: SELPERCATINIB
     Indication: Bronchial carcinoma
  3. RETEVMO [Concomitant]
     Active Substance: SELPERCATINIB

REACTIONS (1)
  - Therapy interrupted [None]
